FAERS Safety Report 6102882-4 (Version None)
Quarter: 2009Q1

REPORT INFORMATION
  Report Type: 
  Country: None (occurrence: None)
  Receive Date: 20090305
  Receipt Date: 20090304
  Transmission Date: 20090719
  Serious: Yes (Hospitalization)
  Sender: FDA-Public Use
  Company Number: FR-SP-2009-00855

PATIENT
  Age: 53 Year
  Sex: Male
  Weight: 100 kg

DRUGS (2)
  1. IMMUCYST [Suspect]
     Indication: BLADDER CANCER
     Route: 043
     Dates: start: 20090130, end: 20090130
  2. IMMUCYST [Suspect]
     Route: 043
     Dates: start: 20090130, end: 20090130

REACTIONS (4)
  - BOVINE TUBERCULOSIS [None]
  - HAEMATURIA [None]
  - HEADACHE [None]
  - PYREXIA [None]
